FAERS Safety Report 10172944 (Version 1)
Quarter: 2014Q2

REPORT INFORMATION
  Report Type: Spontaneous
  Country: US (occurrence: None)
  Receive Date: 20140514
  Receipt Date: 20140514
  Transmission Date: 20141212
  Serious: Yes (Other)
  Sender: FDA-Public Use
  Company Number: None

PATIENT
  Age: 51 Year
  Sex: Female

DRUGS (1)
  1. FLEBOGAMMA [Suspect]
     Indication: NEUROPATHY PERIPHERAL
     Route: 042
     Dates: start: 20140116, end: 20140116

REACTIONS (3)
  - Tremor [None]
  - Pain [None]
  - Paraesthesia [None]
